FAERS Safety Report 6583632-4 (Version None)
Quarter: 2010Q1

REPORT INFORMATION
  Report Type: 
  Country: None (occurrence: None)
  Receive Date: 20100216
  Receipt Date: 20100212
  Transmission Date: 20100710
  Serious: Yes (Hospitalization, Disabling)
  Sender: FDA-Public Use
  Company Number: US-B.I. PHARMACEUTICALS,INC./RIDGEFIELD-2010-BP-00751BP

PATIENT
  Age: 77 Year
  Sex: Male
  Weight: 66.68 kg

DRUGS (4)
  1. SPIRIVA [Suspect]
     Indication: EMPHYSEMA
     Dosage: 18 MCG
     Route: 055
     Dates: end: 20091101
  2. SPIRIVA [Suspect]
     Indication: CHRONIC OBSTRUCTIVE PULMONARY DISEASE
  3. CARDURA [Concomitant]
     Dosage: 32 MG
     Route: 048
  4. ALBUTEROL [Concomitant]
     Dosage: 8 PUF
     Route: 048

REACTIONS (9)
  - AMNESIA [None]
  - COORDINATION ABNORMAL [None]
  - DYSARTHRIA [None]
  - DYSPHAGIA [None]
  - HEMIPARESIS [None]
  - HYPERTENSION [None]
  - HYPOAESTHESIA ORAL [None]
  - LACUNAR INFARCTION [None]
  - SPEECH DISORDER [None]
